FAERS Safety Report 6377120-8 (Version None)
Quarter: 2009Q3

REPORT INFORMATION
  Report Type: 
  Country: None (occurrence: None)
  Receive Date: 20090923
  Receipt Date: 20090923
  Transmission Date: 20100115
  Serious: Yes (Other)
  Sender: FDA-Public Use
  Company Number: None

PATIENT
  Age: 39 Year
  Sex: Female
  Weight: 78.3 kg

DRUGS (4)
  1. INSULIN LISPRO [Suspect]
     Dates: start: 20080305
  2. INSULIN PUMP NOS [Suspect]
  3. AERIUS [Concomitant]
  4. NASONEX [Concomitant]

REACTIONS (1)
  - KETOSIS [None]
